FAERS Safety Report 13563127 (Version 1)
Quarter: 2017Q2

REPORT INFORMATION
  Report Type: Spontaneous
  Country: BR (occurrence: BR)
  Receive Date: 20170519
  Receipt Date: 20170519
  Transmission Date: 20170830
  Serious: Yes (Other)
  Sender: FDA-Public Use
  Company Number: BR-ROCHE-1936083

PATIENT
  Sex: Female

DRUGS (6)
  1. CLONAZEPAM. [Suspect]
     Active Substance: CLONAZEPAM
     Indication: SEIZURE
     Route: 065
  2. DEPAKENE [Concomitant]
     Active Substance: VALPROIC ACID
  3. RIVOTRIL [Suspect]
     Active Substance: CLONAZEPAM
     Route: 065
  4. RIVOTRIL [Suspect]
     Active Substance: CLONAZEPAM
     Route: 065
  5. PANTOPRAZOLE [Concomitant]
     Active Substance: PANTOPRAZOLE
     Indication: HYPERCHLORHYDRIA
     Route: 065
  6. RIVOTRIL [Suspect]
     Active Substance: CLONAZEPAM
     Indication: SEIZURE
     Route: 065

REACTIONS (2)
  - Endometriosis [Not Recovered/Not Resolved]
  - Drug effect decreased [Unknown]
